FAERS Safety Report 17399871 (Version 1)
Quarter: 2020Q1

REPORT INFORMATION
  Report Type: Report from Study
  Country: ES (occurrence: ES)
  Receive Date: 20200211
  Receipt Date: 20200211
  Transmission Date: 20200409
  Serious: Yes (Hospitalization)
  Sender: FDA-Public Use
  Company Number: ES-TEVA-2020-ES-1183591

PATIENT
  Age: 58 Year
  Sex: Male

DRUGS (6)
  1. ATORVASTATINA (7400A) [Concomitant]
     Active Substance: ATORVASTATIN
     Indication: DYSLIPIDAEMIA
     Dosage: 10 MG
     Route: 048
     Dates: start: 201902
  2. PREDNISONA (886A) [Interacting]
     Active Substance: PREDNISONE
     Indication: SOLID ORGAN TRANSPLANT
     Dosage: 5 MG
     Route: 048
     Dates: start: 201902
  3. MICOFENOLATO DE MOFETILO (7330LM) [Suspect]
     Active Substance: MYCOPHENOLATE MOFETIL
     Indication: SOLID ORGAN TRANSPLANT
     Dosage: 1 GRAM
     Route: 048
     Dates: start: 201902, end: 20190826
  4. OMEPRAZOL (2141A) [Concomitant]
     Active Substance: OMEPRAZOLE
     Dosage: 20 MG
     Route: 048
     Dates: start: 201707
  5. TACROLIMUS (2694A) [Interacting]
     Active Substance: TACROLIMUS
     Indication: SOLID ORGAN TRANSPLANT
     Dosage: 4 MG
     Route: 048
     Dates: start: 201902
  6. TAMSULOSINA HIDROCLORURO (2751CH) [Concomitant]
     Active Substance: TAMSULOSIN HYDROCHLORIDE
     Dosage: 0.4 MG
     Route: 048
     Dates: start: 201902

REACTIONS (2)
  - Drug interaction [Unknown]
  - Cytomegalovirus gastritis [Recovering/Resolving]

NARRATIVE: CASE EVENT DATE: 20190810
